FAERS Safety Report 4261875-2 (Version None)
Quarter: 2004Q1

REPORT INFORMATION
  Report Type: 
  Country: None (occurrence: None)
  Receive Date: 20040102
  Receipt Date: 20031219
  Transmission Date: 20041129
  Serious: Yes (Other)
  Sender: FDA-Public Use
  Company Number: PHBS2003JP14431

PATIENT
  Age: 16 Year
  Sex: Male

DRUGS (3)
  1. NEORAL [Suspect]
     Indication: RENAL TRANSPLANT
     Dosage: 375 MG/D
     Route: 048
     Dates: start: 20030809
  2. SIMULECT [Suspect]
     Indication: RENAL TRANSPLANT
     Dosage: 20 MG
     Route: 042
     Dates: start: 20030812
  3. CELLCEPT [Suspect]
     Indication: RENAL TRANSPLANT
     Dosage: 2 G/D
     Route: 048
     Dates: start: 20030809

REACTIONS (1)
  - BLOOD AMYLASE INCREASED [None]
